FAERS Safety Report 18689715 (Version 4)
Quarter: 2021Q1

REPORT INFORMATION
  Report Type: Spontaneous
  Country: UA (occurrence: UA)
  Receive Date: 20201231
  Receipt Date: 20210319
  Transmission Date: 20210419
  Serious: Yes (Life-Threatening)
  Sender: FDA-Public Use
  Company Number: UA-CELGENEUS-UKR-20201208378

PATIENT
  Age: 54 Year
  Sex: Male
  Weight: 75 kg

DRUGS (5)
  1. FILGRASTIM [Concomitant]
     Active Substance: FILGRASTIM
     Indication: NEUTROPHIL COUNT DECREASED
     Dosage: 48 MLN IU
     Route: 058
     Dates: start: 20201217, end: 20201217
  2. ABRAXANE [Suspect]
     Active Substance: PACLITAXEL
     Indication: SQUAMOUS CELL CARCINOMA OF LUNG
     Route: 041
     Dates: start: 20201028
  3. LOPIREL [Concomitant]
     Active Substance: CLOPIDOGREL BISULFATE
     Indication: THROMBOSIS PROPHYLAXIS
     Route: 048
     Dates: start: 2017
  4. SERPLULIMAB. [Suspect]
     Active Substance: SERPLULIMAB
     Indication: SQUAMOUS CELL CARCINOMA OF LUNG
     Dosage: 351 MILLIGRAM
     Route: 041
     Dates: start: 20201028
  5. CARBOPLATIN. [Suspect]
     Active Substance: CARBOPLATIN
     Indication: SQUAMOUS CELL CARCINOMA OF LUNG
     Route: 041
     Dates: start: 20201028

REACTIONS (1)
  - Neutrophil count decreased [Recovered/Resolved]

NARRATIVE: CASE EVENT DATE: 20201222
